FAERS Safety Report 14661645 (Version 1)
Quarter: 2018Q1

REPORT INFORMATION
  Report Type: Spontaneous
  Country: US (occurrence: US)
  Receive Date: 20180320
  Receipt Date: 20180320
  Transmission Date: 20180509
  Serious: No
  Sender: FDA-Public Use
  Company Number: US-ELI_LILLY_AND_COMPANY-US201803006806

PATIENT
  Age: 62 Year
  Sex: Female

DRUGS (1)
  1. BASAGLAR [Suspect]
     Active Substance: INSULIN GLARGINE
     Indication: TYPE 2 DIABETES MELLITUS
     Dosage: 45 U, DAILY
     Route: 065
     Dates: start: 201801

REACTIONS (9)
  - Hunger [Unknown]
  - Fatigue [Unknown]
  - Weight increased [Unknown]
  - Drug ineffective [Unknown]
  - Hypersensitivity [Unknown]
  - Injection site pain [Unknown]
  - Headache [Unknown]
  - Blood glucose increased [Unknown]
  - Stress [Unknown]

NARRATIVE: CASE EVENT DATE: 201801
